FAERS Safety Report 6823185-6 (Version None)
Quarter: 2010Q3

REPORT INFORMATION
  Report Type: 
  Country: None (occurrence: None)
  Receive Date: 20100702
  Receipt Date: 20100623
  Transmission Date: 20110219
  Serious: Yes (Other)
  Sender: FDA-Public Use
  Company Number: 2010SP035719

PATIENT
  Sex: Female

DRUGS (1)
  1. DR. SCHOLL'S FUNGAL NAIL REVITALIZER SYSTEM (NO ACTIVE INGREDIENTS) [Suspect]
     Indication: ONYCHOMYCOSIS
     Dosage: TOP
     Route: 061
     Dates: start: 20100401

REACTIONS (4)
  - CONDITION AGGRAVATED [None]
  - ONYCHOMYCOSIS [None]
  - REFUSAL OF TREATMENT BY PATIENT [None]
  - SKIN DISCOLOURATION [None]
